FAERS Safety Report 11107144 (Version 1)
Quarter: 2015Q2

REPORT INFORMATION
  Report Type: Spontaneous
  Country: FR (occurrence: FR)
  Receive Date: 20150512
  Receipt Date: 20150512
  Transmission Date: 20150821
  Serious: Yes (Other)
  Sender: FDA-Public Use
  Company Number: FR-TEVA-561050ISR

PATIENT
  Age: 47 Year
  Sex: Female

DRUGS (1)
  1. COPAXONE [Suspect]
     Active Substance: GLATIRAMER ACETATE
     Dosage: COPAXONE 20 MG/ML WITH THE AUTPJECT AT A DEPTH OF 12 MM
     Route: 058
     Dates: start: 201306

REACTIONS (6)
  - Multiple sclerosis relapse [Recovered/Resolved]
  - Tendonitis [Not Recovered/Not Resolved]
  - Fatigue [Unknown]
  - Arthralgia [Recovering/Resolving]
  - Diabetes mellitus inadequate control [Recovered/Resolved]
  - Nuclear magnetic resonance imaging abnormal [Unknown]

NARRATIVE: CASE EVENT DATE: 201306
